FAERS Safety Report 11632546 (Version 1)
Quarter: 2015Q4

REPORT INFORMATION
  Report Type: Spontaneous
  Country: US (occurrence: None)
  Receive Date: 20151014
  Receipt Date: 20151014
  Transmission Date: 20160304
  Serious: Yes (Life-Threatening)
  Sender: FDA-Public Use
  Company Number: None

PATIENT
  Age: 28 Year
  Sex: Male
  Weight: 104.33 kg

DRUGS (1)
  1. DEXTROMETHORPHAN HBR 10 MG BIOPHARM [Suspect]
     Active Substance: DEXTROMETHORPHAN HYDROBROMIDE
     Indication: ALTERED STATE OF CONSCIOUSNESS
     Dosage: NONE VARIED ORAL
     Route: 048
     Dates: end: 20151010

REACTIONS (3)
  - Amnesia [None]
  - Altered state of consciousness [None]
  - Product quality issue [None]

NARRATIVE: CASE EVENT DATE: 20141020
